FAERS Safety Report 10047579 (Version 1)
Quarter: 2014Q1

REPORT INFORMATION
  Report Type: Spontaneous
  Country: US (occurrence: US)
  Receive Date: 20140331
  Receipt Date: 20140331
  Transmission Date: 20141002
  Serious: Yes (Other)
  Sender: FDA-Public Use
  Company Number: US-PFIZER INC-2014088115

PATIENT
  Sex: Female
  Weight: 82.99 kg

DRUGS (9)
  1. CELEBREX [Suspect]
     Indication: ARTHRITIS
     Dosage: 200 MG, 1X/DAY
     Route: 048
  2. COREG [Concomitant]
     Dosage: 6.25 MG, 2X/DAY
  3. PLAVIX [Concomitant]
     Dosage: 75 MG, 1X/DAY
  4. HYZAAR [Concomitant]
     Dosage: 100 MG, 1X/DAY
  5. ZETIA [Concomitant]
     Dosage: 10 MG, 1X/DAY
  6. FUROSEMIDE [Concomitant]
     Dosage: 20 MG, 1X/DAY
  7. AMLODIPINE [Concomitant]
     Dosage: UNK
  8. ATORVASTATIN [Concomitant]
     Dosage: UNK
  9. HYDROCODONE [Concomitant]
     Indication: PAIN
     Dosage: UNK

REACTIONS (2)
  - Cerebrovascular accident [Unknown]
  - Convulsion [Not Recovered/Not Resolved]
